FAERS Safety Report 20201881 (Version 5)
Quarter: 2022Q1

REPORT INFORMATION
  Report Type: Spontaneous
  Country: HR (occurrence: HR)
  Receive Date: 20211217
  Receipt Date: 20220107
  Transmission Date: 20220423
  Serious: Yes (Hospitalization, Other)
  Sender: FDA-Public Use
  Company Number: HR-PFIZER INC-202101767239

PATIENT
  Age: 72 Year
  Weight: 78 kg

DRUGS (12)
  1. ATORVASTATIN CALCIUM [Suspect]
     Active Substance: ATORVASTATIN CALCIUM
     Indication: Hypertension
     Dosage: 20 MG, 1X/DAY
  2. ATORVASTATIN CALCIUM [Suspect]
     Active Substance: ATORVASTATIN CALCIUM
     Dosage: 40 MG, 1X/DAY
     Route: 065
  3. ELIQUIS [Suspect]
     Active Substance: APIXABAN
     Indication: Cerebrovascular accident prophylaxis
     Dosage: 5 MG, 2X/DAY
     Route: 065
  4. ELIQUIS [Suspect]
     Active Substance: APIXABAN
     Dosage: 2.5 MG, 2X/DAY
     Route: 065
  5. BISOPROLOL [Suspect]
     Active Substance: BISOPROLOL
     Indication: Hypertension
     Dosage: 5 MG, 1X/DAY (IN THE MORNING)
     Route: 065
  6. BISOPROLOL [Suspect]
     Active Substance: BISOPROLOL
     Dosage: 2.5 MG, 1X/DAY (IN THE EVENING)
     Route: 065
  7. TORSEMIDE [Suspect]
     Active Substance: TORSEMIDE
     Indication: Hypertension
     Dosage: 10 MILLIGRAM, QD
  8. ASPIRIN [Suspect]
     Active Substance: ASPIRIN
     Indication: Hypertension
     Dosage: 100 MILLIGRAM, QD
     Route: 065
  9. RABEPRAZOLE [Suspect]
     Active Substance: RABEPRAZOLE
     Dosage: 10 MILLIGRAM, QD
     Route: 065
  10. AMLODIPINE\RAMIPRIL [Suspect]
     Active Substance: AMLODIPINE\RAMIPRIL
     Dosage: 1 DOSAGE FORM, QD
     Route: 065
  11. INDAPAMIDE [Suspect]
     Active Substance: INDAPAMIDE
     Dosage: 1 DOSAGE FORM, QD
     Route: 065
  12. METFORMIN [Concomitant]
     Active Substance: METFORMIN HYDROCHLORIDE
     Indication: Diabetes mellitus
     Dosage: 500 MILLIGRAM, BID
     Route: 065

REACTIONS (10)
  - Acute myocardial infarction [Unknown]
  - Melaena [Recovered/Resolved]
  - Atrial fibrillation [Unknown]
  - Gastric ulcer [Unknown]
  - Helicobacter test positive [Recovered/Resolved]
  - Palpitations [Unknown]
  - Dyspnoea [Unknown]
  - Chest pain [Unknown]
  - Abdominal pain upper [Unknown]
  - Fatigue [Unknown]

NARRATIVE: CASE EVENT DATE: 20210101
